FAERS Safety Report 22269293 (Version 1)
Quarter: 2023Q2

REPORT INFORMATION
  Report Type: Spontaneous
  Country: IT (occurrence: IT)
  Receive Date: 20230501
  Receipt Date: 20230501
  Transmission Date: 20230721
  Serious: Yes (Hospitalization)
  Sender: FDA-Public Use
  Company Number: None

PATIENT
  Age: 72 Year
  Sex: Female
  Weight: 63 kg

DRUGS (7)
  1. CARBAMAZEPINE [Interacting]
     Active Substance: CARBAMAZEPINE
     Indication: Epilepsy
     Dosage: 200 MG, Q8H (200 MG ORE 8.00, 200 MG ORE 12.00 E 400 MG ORE 20.00 )
     Route: 048
  2. CHLORPHENIRAMINE MALEATE [Interacting]
     Active Substance: CHLORPHENIRAMINE MALEATE
     Indication: Premedication
     Dosage: 10 MG (1 FIALE ENDOVENA PRIMA DELLA CHEMIOTERAPIA CON PACLITAXEL)
     Route: 042
     Dates: start: 20230201, end: 20230201
  3. LEVOTHYROXINE SODIUM [Concomitant]
     Active Substance: LEVOTHYROXINE SODIUM
     Indication: Product used for unknown indication
     Dosage: 125 UG, Q48H (125 MICROGRAMS ALTERNATING WITH 100 MICROGRAMS)
     Route: 048
  4. LEVOTHYROXINE SODIUM [Concomitant]
     Active Substance: LEVOTHYROXINE SODIUM
     Dosage: 100 UG, Q48H  (100 MICROGRAMS ALTERNATING WITH 125 MICROGRAMS)
     Route: 048
  5. PACLITAXEL [Concomitant]
     Active Substance: PACLITAXEL
     Indication: Endometrial adenocarcinoma
     Dosage: 280 MG (PACLITAXEL 280 MG IN NACL 0,9% 500ML PER 3 H )
     Route: 042
     Dates: start: 20230201, end: 20230201
  6. CARBOPLATIN [Concomitant]
     Active Substance: CARBOPLATIN
     Indication: Endometrial adenocarcinoma
     Dosage: 412.36 MG (IN GLUCOSIO 5% 500ML PER 60 MIN )
     Route: 042
     Dates: start: 20230201
  7. PANTOPRAZOLE SODIUM [Concomitant]
     Active Substance: PANTOPRAZOLE SODIUM
     Indication: Product used for unknown indication
     Dosage: 20 MG, Q24H
     Route: 048

REACTIONS (1)
  - Toxic encephalopathy [Recovered/Resolved]

NARRATIVE: CASE EVENT DATE: 20230203
